FAERS Safety Report 5909822-9 (Version None)
Quarter: 2008Q4

REPORT INFORMATION
  Report Type: 
  Country: None (occurrence: None)
  Receive Date: 20081007
  Receipt Date: 20081001
  Transmission Date: 20090506
  Serious: Yes (Hospitalization)
  Sender: FDA-Public Use
  Company Number: US-BRISTOL-MYERS SQUIBB COMPANY-14355903

PATIENT
  Sex: Female

DRUGS (2)
  1. ABILIFY [Suspect]
     Indication: BIPOLAR DISORDER
  2. TRILEPTAL [Suspect]
     Indication: BIPOLAR DISORDER

REACTIONS (2)
  - BLOOD SODIUM DECREASED [None]
  - PSYCHOTIC DISORDER [None]
